FAERS Safety Report 8169820-4 (Version None)
Quarter: 2012Q1

REPORT INFORMATION
  Report Type: 
  Country: None (occurrence: None)
  Receive Date: 20120228
  Receipt Date: 20120217
  Transmission Date: 20120608
  Serious: Yes (Other)
  Sender: FDA-Public Use
  Company Number: US-JNJFOC-20120205837

PATIENT

DRUGS (1)
  1. RISPERDAL CONSTA [Suspect]
     Indication: ACCIDENTAL EXPOSURE
     Route: 030

REACTIONS (5)
  - EXPOSURE TO CONTAMINATED DEVICE [None]
  - ACCIDENTAL EXPOSURE [None]
  - SYRINGE ISSUE [None]
  - INJURY ASSOCIATED WITH DEVICE [None]
  - DEVICE MALFUNCTION [None]
